FAERS Safety Report 24860305 (Version 1)
Quarter: 2025Q1

REPORT INFORMATION
  Report Type: Spontaneous
  Country: US (occurrence: US)
  Receive Date: 20250120
  Receipt Date: 20250120
  Transmission Date: 20250409
  Serious: Yes (Hospitalization, Other)
  Sender: EPIC PHARM
  Company Number: US-EPICPHARMA-US-2025EPCSPO00015

PATIENT
  Age: 76 Year
  Sex: Female
  Weight: 49 kg

DRUGS (8)
  1. RIFAMPIN [Suspect]
     Active Substance: RIFAMPIN
     Indication: Mycobacterium avium complex infection
     Route: 065
     Dates: start: 202406
  2. RIFAMPIN [Suspect]
     Active Substance: RIFAMPIN
     Route: 065
     Dates: start: 202412
  3. AZITHROMYCIN [Suspect]
     Active Substance: AZITHROMYCIN
     Indication: Mycobacterium avium complex infection
     Route: 065
     Dates: start: 202406
  4. AZITHROMYCIN [Suspect]
     Active Substance: AZITHROMYCIN
     Route: 065
     Dates: start: 202412
  5. CLOFAZIMINE [Suspect]
     Active Substance: CLOFAZIMINE
     Indication: Mycobacterium avium complex infection
     Route: 048
     Dates: start: 202406
  6. CLOFAZIMINE [Suspect]
     Active Substance: CLOFAZIMINE
     Route: 065
     Dates: start: 20241114
  7. CLOFAZIMINE [Suspect]
     Active Substance: CLOFAZIMINE
     Route: 065
     Dates: start: 20241114
  8. CLOFAZIMINE [Suspect]
     Active Substance: CLOFAZIMINE
     Route: 065
     Dates: start: 20241202, end: 20241212

REACTIONS (6)
  - Hypertension [Unknown]
  - Illness [Unknown]
  - Acute kidney injury [Recovered/Resolved]
  - Vomiting [Unknown]
  - Diarrhoea [Unknown]
  - Product use in unapproved indication [Unknown]

NARRATIVE: CASE EVENT DATE: 20240620
